FAERS Safety Report 7572096-X (Version None)
Quarter: 2011Q2

REPORT INFORMATION
  Report Type: 
  Country: None (occurrence: None)
  Receive Date: 20110624
  Receipt Date: 20110617
  Transmission Date: 20111010
  Serious: Yes (Death, Life-Threatening, Hospitalization)
  Sender: FDA-Public Use
  Company Number: US-AMGEN-USACT2011031226

PATIENT
  Age: 75 Year
  Sex: Female

DRUGS (3)
  1. TEMOZOLOMIDE [Concomitant]
     Indication: GLIOBLASTOMA MULTIFORME
     Dosage: 75 MG/M2, UNK
     Route: 048
     Dates: start: 20101019
  2. FILGRASTIM [Suspect]
     Indication: GLIOBLASTOMA MULTIFORME
     Dosage: 480 A?G, QD
     Dates: start: 20101119
  3. BEVACIZUMAB [Concomitant]
     Indication: GLIOBLASTOMA MULTIFORME
     Dosage: UNK
     Route: 042
     Dates: start: 20101109

REACTIONS (23)
  - WHITE BLOOD CELL COUNT DECREASED [None]
  - PANCYTOPENIA [None]
  - CONFUSIONAL STATE [None]
  - MALNUTRITION [None]
  - NEUTROPHIL COUNT DECREASED [None]
  - GASTROINTESTINAL ANASTOMOTIC LEAK [None]
  - CONTUSION [None]
  - LARGE INTESTINE PERFORATION [None]
  - PLATELET COUNT DECREASED [None]
  - MENTAL STATUS CHANGES [None]
  - CD4 LYMPHOCYTES DECREASED [None]
  - ENTERITIS INFECTIOUS [None]
  - RESPIRATORY DISTRESS [None]
  - SOMNOLENCE [None]
  - CARDIAC FAILURE CONGESTIVE [None]
  - FEBRILE NEUTROPENIA [None]
  - ENTEROCOLITIS INFECTIOUS [None]
  - ANAEMIA [None]
  - PELVIC ABSCESS [None]
  - FLUID OVERLOAD [None]
  - BACTERAEMIA [None]
  - PULMONARY OEDEMA [None]
  - THROMBOCYTOPENIA [None]
